FAERS Safety Report 4451681-8 (Version None)
Quarter: 2004Q3

REPORT INFORMATION
  Report Type: 
  Country: None (occurrence: None)
  Receive Date: 20040915
  Receipt Date: 20040907
  Transmission Date: 20050211
  Serious: Yes (Life-Threatening, Hospitalization)
  Sender: FDA-Public Use
  Company Number: 2003187364DE

PATIENT
  Age: 16 Year
  Sex: Male

DRUGS (2)
  1. GENOTROPIN [Suspect]
     Indication: HYPOPITUITARISM
     Dosage: 0.8 MG, QD,
     Dates: start: 20020411, end: 20030220
  2. LEVOTHYROXINE SODIUM [Concomitant]

REACTIONS (2)
  - NEOPLASM MALIGNANT [None]
  - PAPILLARY THYROID CANCER [None]
